FAERS Safety Report 7446904-7 (Version None)
Quarter: 2011Q2

REPORT INFORMATION
  Report Type: 
  Country: None (occurrence: None)
  Receive Date: 20110429
  Receipt Date: 20101221
  Transmission Date: 20111010
  Serious: No
  Sender: FDA-Public Use
  Company Number: US-ASTRAZENECA-2010SE53290

PATIENT
  Sex: Male

DRUGS (1)
  1. NEXIUM [Suspect]
     Route: 048

REACTIONS (12)
  - MENISCUS LESION [None]
  - BRONCHITIS [None]
  - EMOTIONAL DISORDER [None]
  - POLYDIPSIA [None]
  - DECREASED APPETITE [None]
  - FALL [None]
  - MENTAL DISORDER [None]
  - VOMITING [None]
  - STRESS [None]
  - BIPOLAR I DISORDER [None]
  - WRONG DRUG ADMINISTERED [None]
  - DEPRESSION [None]
